FAERS Safety Report 4633679-X (Version None)
Quarter: 2005Q2

REPORT INFORMATION
  Report Type: 
  Country: None (occurrence: None)
  Receive Date: 20050325
  Receipt Date: 20050120
  Transmission Date: 20051028
  Serious: No
  Sender: FDA-Public Use
  Company Number: USA041286908

PATIENT
  Age: 84 Year
  Sex: Female

DRUGS (1)
  1. FORTEO [Suspect]
     Indication: OSTEOPOROSIS
     Dosage: 20 UG/1 DAY
     Dates: start: 20041216

REACTIONS (5)
  - COUGH [None]
  - DIFFICULTY IN WALKING [None]
  - LARYNGITIS [None]
  - MYALGIA [None]
  - NASOPHARYNGITIS [None]
